FAERS Safety Report 19889943 (Version 1)
Quarter: 2021Q3

REPORT INFORMATION
  Report Type: Spontaneous
  Country: DE (occurrence: DE)
  Receive Date: 20210927
  Receipt Date: 20210927
  Transmission Date: 20211014
  Serious: Yes (Other)
  Sender: FDA-Public Use
  Company Number: DE-TEVA-2021-DE-1960129

PATIENT
  Age: 15 Year
  Sex: Female

DRUGS (4)
  1. QUETIAPIN?RATIOPHARM 50 MG FILMTABLETTEN [Suspect]
     Active Substance: QUETIAPINE
     Indication: DECREASED APPETITE
     Dosage: 100 MILLIGRAM DAILY; 1?0?1
     Route: 048
  2. QUETIAPIN?RATIOPHARM 200 MG FILMTABLETTEN [Suspect]
     Active Substance: QUETIAPINE
     Indication: DECREASED APPETITE
     Dosage: 400 MILLIGRAM DAILY; 1?0?1
     Route: 048
  3. QUETIAPIN?RATIOPHARM 50 MG FILMTABLETTEN [Suspect]
     Active Substance: QUETIAPINE
     Indication: PERSONALITY DISORDER
  4. QUETIAPIN?RATIOPHARM 200 MG FILMTABLETTEN [Suspect]
     Active Substance: QUETIAPINE
     Indication: PERSONALITY DISORDER

REACTIONS (1)
  - Pericardial effusion [Unknown]
